FAERS Safety Report 6122911-1 (Version None)
Quarter: 2009Q1

REPORT INFORMATION
  Report Type: 
  Country: None (occurrence: None)
  Receive Date: 20090318
  Receipt Date: 20080611
  Transmission Date: 20090719
  Serious: No
  Sender: FDA-Public Use
  Company Number: US-AMGEN-KDL286632

PATIENT
  Sex: Male

DRUGS (3)
  1. NEULASTA [Suspect]
     Indication: CHEMOTHERAPY
  2. ERBITUX [Concomitant]
  3. IRINOTECAN HCL [Concomitant]

REACTIONS (2)
  - ACCIDENTAL EXPOSURE [None]
  - BACK PAIN [None]
